FAERS Safety Report 4632610-0 (Version None)
Quarter: 2005Q2

REPORT INFORMATION
  Report Type: 
  Country: None (occurrence: None)
  Receive Date: 20050408
  Receipt Date: 20050323
  Transmission Date: 20051028
  Serious: Yes (Death)
  Sender: FDA-Public Use
  Company Number: 2005S1001490

PATIENT
  Age: 69 Year
  Sex: Male

DRUGS (3)
  1. CLOZAPINE [Suspect]
     Indication: SCHIZOPHRENIA
     Dosage: 300 MG; HS; PO
     Route: 048
  2. CITALOPRAM HYDROBROMIDE [Concomitant]
  3. LISINOPRIL [Concomitant]

REACTIONS (1)
  - DEATH [None]
